FAERS Safety Report 26185714 (Version 1)
Quarter: 2025Q4

REPORT INFORMATION
  Report Type: Spontaneous
  Country: GB (occurrence: GB)
  Receive Date: 20251222
  Receipt Date: 20251222
  Transmission Date: 20260118
  Serious: Yes (Other)
  Sender: DEXCEL LTD.
  Company Number: None

PATIENT
  Age: 9 Year
  Sex: Female

DRUGS (1)
  1. OMEPRAZOLE [Suspect]
     Active Substance: OMEPRAZOLE
     Indication: Product used for unknown indication

REACTIONS (7)
  - Hypothyroidism [Unknown]
  - Hereditary alpha tryptasaemia [Unknown]
  - Urticaria chronic [Unknown]
  - Migraine [Unknown]
  - Rhinitis allergic [Unknown]
  - Allergic reaction to excipient [Unknown]
  - Product administered to patient of inappropriate age [Unknown]
